FAERS Safety Report 8920168 (Version 1)
Quarter: 2012Q4

REPORT INFORMATION
  Report Type: Report from Study
  Country: US (occurrence: US)
  Receive Date: 20121122
  Receipt Date: 20121122
  Transmission Date: 20130627
  Serious: Yes (Hospitalization)
  Sender: FDA-Public Use
  Company Number: US-ROCHE-1151379

PATIENT
  Age: 60 Year
  Sex: Female
  Weight: 74.92 kg

DRUGS (2)
  1. BEVACIZUMAB [Suspect]
     Indication: OVARIAN EPITHELIAL CANCER
     Dosage: last dose received on 19/Oct/2012
     Route: 042
     Dates: start: 20120713
  2. EVEROLIMUS [Suspect]
     Indication: OVARIAN EPITHELIAL CANCER
     Dosage: last dose received on 30/Oct/2012
     Route: 048
     Dates: start: 20120713

REACTIONS (3)
  - Supraventricular tachycardia [Recovered/Resolved]
  - Embolism [Recovered/Resolved]
  - Ascites [Recovered/Resolved]
